FAERS Safety Report 19435178 (Version 3)
Quarter: 2021Q3

REPORT INFORMATION
  Report Type: Report from Study
  Country: US (occurrence: US)
  Receive Date: 20210617
  Receipt Date: 20210813
  Transmission Date: 20211014
  Serious: Yes (Hospitalization, Other)
  Sender: FDA-Public Use
  Company Number: US-BEH-2021132725

PATIENT
  Age: 67 Year
  Sex: Female
  Weight: 112.93 kg

DRUGS (3)
  1. HAEGARDA [Suspect]
     Active Substance: HUMAN C1-ESTERASE INHIBITOR
     Indication: PROPHYLAXIS
     Dosage: 6000 INTERNATIONAL UNIT, BIW
     Route: 058
     Dates: start: 20210609
  2. HAEGARDA [Suspect]
     Active Substance: HUMAN C1-ESTERASE INHIBITOR
     Indication: HEREDITARY ANGIOEDEMA
  3. HAEGARDA [Suspect]
     Active Substance: HUMAN C1-ESTERASE INHIBITOR
     Indication: HEREDITARY ANGIOEDEMA
     Dosage: 6000 INTERNATIONAL UNIT, BIW
     Route: 058
     Dates: start: 20210602

REACTIONS (9)
  - Erythema [Unknown]
  - Hereditary angioedema [Recovered/Resolved]
  - Stress [Recovered/Resolved]
  - Insomnia [Recovered/Resolved]
  - Hereditary angioedema [Recovering/Resolving]
  - Skin discolouration [Unknown]
  - Hereditary angioedema [Not Recovered/Not Resolved]
  - Chest pain [Recovering/Resolving]
  - Hereditary angioedema [Not Recovered/Not Resolved]

NARRATIVE: CASE EVENT DATE: 20210602
